FAERS Safety Report 4412292-3 (Version None)
Quarter: 2004Q2

REPORT INFORMATION
  Report Type: 
  Country: None (occurrence: None)
  Receive Date: 20040630
  Receipt Date: 20040412
  Transmission Date: 20050107
  Serious: No
  Sender: FDA-Public Use
  Company Number: 04P-163-0257029-00

PATIENT
  Age: 65 Year
  Sex: Female
  Weight: 69.4003 kg

DRUGS (10)
  1. HUMIRA [Suspect]
     Indication: RHEUMATOID ARTHRITIS
     Dosage: 40 MG, 1 IN 2 WK, SUBCUTANEOUS
     Route: 058
     Dates: start: 20031201, end: 20040406
  2. METHOTREXATE [Concomitant]
  3. BUCINDOLOL HYDROCHLORIDE [Concomitant]
  4. HYDROXYCHLOROQUINE PHOSPHATE [Concomitant]
  5. METOPROLOL TARTRATE [Concomitant]
  6. AMLODIPINE BESYLATE [Concomitant]
  7. PREDNISONE [Concomitant]
  8. SERTRALINE HYDROCHLORIDE [Concomitant]
  9. ATORVASTATIN [Concomitant]
  10. LEVOTHYROXINE SODIUM [Concomitant]

REACTIONS (3)
  - COUGH [None]
  - PULMONARY CONGESTION [None]
  - SINUS CONGESTION [None]
